FAERS Safety Report 8479013-9 (Version None)
Quarter: 2012Q2

REPORT INFORMATION
  Report Type: 
  Country: None (occurrence: None)
  Receive Date: 20120629
  Receipt Date: 20120626
  Transmission Date: 20120825
  Serious: Yes (Hospitalization)
  Sender: FDA-Public Use
  Company Number: US-MERCK-1107USA01266

PATIENT
  Age: 62 Year
  Sex: Female

DRUGS (2)
  1. FOSAMAX [Suspect]
     Indication: OSTEOPOROSIS
     Route: 048
     Dates: start: 19990101, end: 20100101
  2. FOSAMAX [Suspect]
     Route: 048
     Dates: end: 20100901

REACTIONS (15)
  - BURSITIS [None]
  - BONE CYST [None]
  - SCIATICA [None]
  - HYPERTENSION [None]
  - LIGAMENT SPRAIN [None]
  - ILIOTIBIAL BAND SYNDROME [None]
  - CHONDROMALACIA [None]
  - FALL [None]
  - OSTEOPENIA [None]
  - ARTHRITIS [None]
  - FEMUR FRACTURE [None]
  - ANKLE FRACTURE [None]
  - WRIST FRACTURE [None]
  - CARPAL TUNNEL SYNDROME [None]
  - MUSCLE DISORDER [None]
